FAERS Safety Report 20008416 (Version 1)
Quarter: 2021Q4

REPORT INFORMATION
  Report Type: Spontaneous
  Country: CN (occurrence: CN)
  Receive Date: 20211028
  Receipt Date: 20211028
  Transmission Date: 20220303
  Serious: Yes (Other)
  Sender: FDA-Public Use
  Company Number: CN-SLATE RUN PHARMACEUTICALS-21CN000745

PATIENT

DRUGS (10)
  1. AZITHROMYCIN [Suspect]
     Active Substance: AZITHROMYCIN
     Indication: COVID-19
     Dosage: 0.25 GRAM, BID
     Dates: start: 2020, end: 2020
  2. UNSPECIFIED INGREDIENT [Concomitant]
     Active Substance: UNSPECIFIED INGREDIENT
     Indication: COVID-19
     Dosage: UNK
     Dates: start: 2020
  3. RECOMBINANT HUMAN INTERFERON ?2B [Concomitant]
     Indication: COVID-19
     Dosage: 5 MILLION INTERNATIONAL UNIT, QD
     Route: 055
     Dates: start: 2020, end: 2020
  4. UMIFENOVIR [Concomitant]
     Active Substance: UMIFENOVIR
     Indication: COVID-19
     Dosage: 200 MILLIGRAM, TID
     Route: 048
     Dates: start: 2020, end: 2020
  5. PHOSPHOLIPID [Concomitant]
     Active Substance: PHOSPHOLIPID
     Indication: Product used for unknown indication
     Dosage: 458 MILLIGRAM, TID
     Dates: start: 2020
  6. GLUTATHIONE [Concomitant]
     Active Substance: GLUTATHIONE
     Indication: Product used for unknown indication
     Dosage: 1.8 GRAM, QD
     Dates: start: 2020
  7. DINOPROSTONE [Concomitant]
     Active Substance: DINOPROSTONE
     Indication: Induction of cervix ripening
     Dosage: UNK
     Dates: start: 2020
  8. OXYTOCIN [Concomitant]
     Active Substance: OXYTOCIN
     Indication: Induced labour
     Dosage: UNK
     Dates: start: 2020
  9. UNSPECIFIED INGREDIENT [Concomitant]
     Active Substance: UNSPECIFIED INGREDIENT
     Indication: Product used for unknown indication
     Dosage: UNK
     Route: 008
     Dates: start: 2020
  10. OXYGEN [Concomitant]
     Active Substance: OXYGEN
     Indication: Product used for unknown indication
     Dosage: UNK
     Route: 045
     Dates: start: 2020

REACTIONS (5)
  - Placental insufficiency [Unknown]
  - Placental calcification [Unknown]
  - Placental disorder [Unknown]
  - Off label use [Recovered/Resolved]
  - Maternal exposure during pregnancy [Recovered/Resolved]

NARRATIVE: CASE EVENT DATE: 20200101
